FAERS Safety Report 8806918 (Version 1)
Quarter: 2012Q4

REPORT INFORMATION
  Report Type: 
  Country: DE (occurrence: DE)
  Receive Date: 20120925
  Receipt Date: 20120925
  Transmission Date: 20130627
  Serious: Yes (Hospitalization, Other)
  Sender: FDA-Public Use
  Company Number: DE-ABBOTT-12P-062-0959072-00

PATIENT
  Age: 59 Year
  Sex: Female

DRUGS (1)
  1. DUODOPA GEL [Suspect]
     Indication: PARKINSON^S DISEASE
     Route: 050
     Dates: start: 201207

REACTIONS (3)
  - Intestinal perforation [Recovering/Resolving]
  - Peritonitis [Unknown]
  - Procedural complication [Recovering/Resolving]
